FAERS Safety Report 17865656 (Version 1)
Quarter: 2020Q2

REPORT INFORMATION
  Report Type: Spontaneous
  Country: FR (occurrence: FR)
  Receive Date: 20200605
  Receipt Date: 20200605
  Transmission Date: 20200714
  Serious: Yes (Hospitalization)
  Sender: FDA-Public Use
  Company Number: FR-TEVA-2020-FR-1244448

PATIENT
  Age: 81 Year
  Sex: Male
  Weight: 100 kg

DRUGS (15)
  1. ATORVASTATINE ARROW 40 MG, COMPRIME PELLICULE [Suspect]
     Active Substance: ATORVASTATIN
     Indication: PROPHYLAXIS
     Dosage: 1 DOSAGE FORMS
     Route: 048
     Dates: end: 20200506
  2. STAGID 700 MG, COMPRIME SECABLE [Suspect]
     Active Substance: METFORMIN PAMOATE
     Indication: TYPE 2 DIABETES MELLITUS
     Dosage: 3 DOSAGE FORMS
     Route: 048
     Dates: end: 20200505
  3. RIFADINE [Concomitant]
     Active Substance: RIFAMPIN
  4. SERESTA [Concomitant]
     Active Substance: OXAZEPAM
  5. FUROSEMIDE. [Concomitant]
     Active Substance: FUROSEMIDE
  6. TRAMADOL (CHLORHYDRATE DE) [Suspect]
     Active Substance: TRAMADOL HYDROCHLORIDE
     Indication: PAIN
     Route: 048
     Dates: start: 20200422, end: 20200506
  7. BACTRIM [Suspect]
     Active Substance: SULFAMETHOXAZOLE\TRIMETHOPRIM
     Indication: INFECTION
     Dosage: 2 DOSAGE FORMS
     Route: 048
     Dates: start: 20200430, end: 20200505
  8. PANTOPRAZOLE [Concomitant]
     Active Substance: PANTOPRAZOLE
  9. LERCANIDIPINE (CHLORHYDRATE DE) [Concomitant]
     Active Substance: LERCANIDIPINE HYDROCHLORIDE
  10. SPIRIVA [Concomitant]
     Active Substance: TIOTROPIUM BROMIDE MONOHYDRATE
  11. SYMBICORT [Concomitant]
     Active Substance: BUDESONIDE\FORMOTEROL FUMARATE DIHYDRATE
  12. TAMSULOSINE [Concomitant]
     Active Substance: TAMSULOSIN HYDROCHLORIDE
  13. CANDESARTAN SANDOZ 8 MG, COMPRIME SECABLE [Suspect]
     Active Substance: CANDESARTAN CILEXETIL
     Indication: HYPERTENSION
     Dosage: 1 DOSAGE FORMS
     Route: 048
     Dates: end: 20200505
  14. IMOVANE [Concomitant]
     Active Substance: ZOPICLONE
  15. KARDEGIC [Suspect]
     Active Substance: ASPIRIN DL-LYSINE
     Indication: PROPHYLAXIS
     Dosage: 1 DOSAGE FORMS
     Route: 048
     Dates: end: 20200506

REACTIONS (1)
  - Acute kidney injury [Recovering/Resolving]

NARRATIVE: CASE EVENT DATE: 20200505
